FAERS Safety Report 9926967 (Version 1)
Quarter: 2014Q1

REPORT INFORMATION
  Report Type: Spontaneous
  Country: US (occurrence: US)
  Receive Date: 20140226
  Receipt Date: 20140226
  Transmission Date: 20141002
  Serious: Yes (Other)
  Sender: FDA-Public Use
  Company Number: US-AMGEN-USASP2013089826

PATIENT
  Age: 69 Year
  Sex: Female

DRUGS (2)
  1. ENBREL [Suspect]
     Indication: RHEUMATOID ARTHRITIS
     Dosage: 50 MG, ONCE A WEEK
     Route: 065
     Dates: start: 20131213
  2. ARAVA [Concomitant]
     Dosage: 10 MG, ONCE A DAY
     Dates: start: 2011

REACTIONS (5)
  - Chest pain [Recovered/Resolved]
  - Throat irritation [Recovered/Resolved]
  - Oral discomfort [Recovered/Resolved]
  - Discomfort [Recovered/Resolved]
  - Pain [Unknown]
